FAERS Safety Report 5261033-9 (Version None)
Quarter: 2007Q1

REPORT INFORMATION
  Report Type: 
  Country: None (occurrence: None)
  Receive Date: 20070309
  Receipt Date: 20070228
  Transmission Date: 20070707
  Serious: Yes (Other)
  Sender: FDA-Public Use
  Company Number: 2006UW10761

PATIENT
  Sex: Male
  Weight: 131.8 kg

DRUGS (3)
  1. SEROQUEL [Suspect]
     Indication: BIPOLAR DISORDER
     Route: 048
  2. ZYPREXA [Suspect]
     Dates: start: 19961231, end: 19970610
  3. RISPERDAL [Suspect]

REACTIONS (2)
  - DIABETES MELLITUS [None]
  - DIABETIC COMA [None]
